FAERS Safety Report 7677944-0 (Version None)
Quarter: 2011Q3

REPORT INFORMATION
  Report Type: 
  Country: None (occurrence: None)
  Receive Date: 20110811
  Receipt Date: 20110728
  Transmission Date: 20111222
  Serious: Yes (Death, Hospitalization)
  Sender: FDA-Public Use
  Company Number: US-ACTELION-A-US2011-51954

PATIENT

DRUGS (3)
  1. TRACLEER [Suspect]
     Indication: PULMONARY ARTERIAL HYPERTENSION
     Dosage: UNK
     Route: 048
     Dates: start: 20100820, end: 20110701
  2. PLAVIX [Concomitant]
  3. INSULIN [Concomitant]

REACTIONS (8)
  - SLEEP APNOEA SYNDROME [None]
  - CARDIAC FAILURE CONGESTIVE [None]
  - COR PULMONALE [None]
  - ASTHMA [None]
  - DIABETES MELLITUS [None]
  - PNEUMONIA [None]
  - SEPSIS [None]
  - CORONARY ARTERY DISEASE [None]
